FAERS Safety Report 19860161 (Version 1)
Quarter: 2021Q3

REPORT INFORMATION
  Report Type: Spontaneous
  Country: US (occurrence: US)
  Receive Date: 20210921
  Receipt Date: 20210921
  Transmission Date: 20211014
  Serious: Yes (Other)
  Sender: FDA-Public Use
  Company Number: US-GLAXOSMITHKLINE-US2021GSK199197

PATIENT
  Sex: Female

DRUGS (6)
  1. ZANTAC [Suspect]
     Active Substance: RANITIDINE HYDROCHLORIDE
     Indication: STRESS
     Dosage: 150 MG, QD
     Route: 065
     Dates: start: 200001, end: 201909
  2. ZANTAC [Suspect]
     Active Substance: RANITIDINE HYDROCHLORIDE
     Dosage: 300 MG, QD
     Route: 065
     Dates: start: 200001, end: 201909
  3. ZANTAC [Suspect]
     Active Substance: RANITIDINE HYDROCHLORIDE
     Dosage: 300 MG, QD
     Route: 065
     Dates: start: 200001, end: 201909
  4. ZANTAC [Suspect]
     Active Substance: RANITIDINE HYDROCHLORIDE
     Indication: STRESS
     Dosage: 150 MG, QD
     Route: 065
     Dates: start: 200001, end: 201909
  5. RANITIDINE HYDROCHLORIDE. [Suspect]
     Active Substance: RANITIDINE HYDROCHLORIDE
     Indication: STRESS
     Dosage: UNK UNK, QD
     Route: 065
     Dates: start: 200101, end: 200906
  6. RANITIDINE HYDROCHLORIDE. [Suspect]
     Active Substance: RANITIDINE HYDROCHLORIDE
     Indication: STRESS
     Dosage: UNK UNK, QD
     Route: 065
     Dates: start: 200101, end: 200906

REACTIONS (1)
  - Breast cancer [Unknown]
